FAERS Safety Report 16933951 (Version 1)
Quarter: 2019Q4

REPORT INFORMATION
  Report Type: Spontaneous
  Country: US (occurrence: US)
  Receive Date: 20191018
  Receipt Date: 20191018
  Transmission Date: 20200122
  Serious: No
  Sender: FDA-Public Use
  Company Number: US-BTG-201900081

PATIENT
  Age: 29 Year
  Sex: Male

DRUGS (1)
  1. DIGIFAB [Suspect]
     Active Substance: OVINE DIGOXIN IMMUNE FAB
     Indication: POISONING DELIBERATE
     Dosage: 10 VIALS
     Route: 065

REACTIONS (1)
  - Off label use [Unknown]
